FAERS Safety Report 11697628 (Version 2)
Quarter: 2015Q4

REPORT INFORMATION
  Report Type: Spontaneous
  Country: US (occurrence: US)
  Receive Date: 20151104
  Receipt Date: 20151130
  Transmission Date: 20160304
  Serious: No
  Sender: FDA-Public Use
  Company Number: US-PFIZER INC-2015364392

PATIENT
  Age: 80 Year
  Sex: Female
  Weight: 54 kg

DRUGS (4)
  1. ARTIFICIAL TEARS [Concomitant]
     Active Substance: GLYCERIN\HYPROMELLOSES\POLYETHYLENE GLYCOL 400
     Indication: DRY EYE
     Dosage: UNK, 4X/DAY
  2. LATANOPROST. [Suspect]
     Active Substance: LATANOPROST
     Dosage: UNK
  3. LATANOPROST. [Suspect]
     Active Substance: LATANOPROST
     Indication: GLAUCOMA
     Dosage: 2 GTT, 1X/DAY (1 DROP IN EACH EYE,AT NIGHT)
     Route: 047
     Dates: start: 20151010
  4. SYNTHROID [Concomitant]
     Active Substance: LEVOTHYROXINE SODIUM
     Indication: THYROIDECTOMY
     Dosage: 0.075 MG, 1X/DAY

REACTIONS (6)
  - Lacrimation increased [Recovering/Resolving]
  - Product quality issue [Unknown]
  - Poor quality drug administered [Unknown]
  - Ocular hyperaemia [Recovering/Resolving]
  - Vision blurred [Recovered/Resolved]
  - Eye irritation [Recovering/Resolving]

NARRATIVE: CASE EVENT DATE: 201510
